FAERS Safety Report 5884917-7 (Version None)
Quarter: 2008Q3

REPORT INFORMATION
  Report Type: 
  Country: None (occurrence: None)
  Receive Date: 20080916
  Receipt Date: 20080910
  Transmission Date: 20090109
  Serious: Yes (Other)
  Sender: FDA-Public Use
  Company Number: A0746787A

PATIENT
  Age: 67 Year
  Sex: Female

DRUGS (8)
  1. LOVAZA [Suspect]
     Dosage: 1CAP VARIABLE DOSE
     Route: 048
  2. BLOOD PRESSURE MEDICATION [Concomitant]
  3. DYAZIDE [Concomitant]
  4. AZOR [Concomitant]
  5. ARGATROBAN [Concomitant]
  6. METFORMIN HCL [Concomitant]
  7. GLIMEPIRIDE [Concomitant]
  8. ASPIRIN [Concomitant]

REACTIONS (1)
  - RETINAL HAEMORRHAGE [None]
